FAERS Safety Report 4704930-2 (Version None)
Quarter: 2005Q3

REPORT INFORMATION
  Report Type: 
  Country: None (occurrence: None)
  Receive Date: 20050701
  Receipt Date: 20020117
  Transmission Date: 20060218
  Serious: Yes (Hospitalization)
  Sender: FDA-Public Use
  Company Number: US-BRISTOL-MYERS SQUIBB COMPANY-11675972

PATIENT
  Age: 1 Day
  Sex: Male
  Weight: 3 kg

DRUGS (4)
  1. VIDEX [Suspect]
     Dosage: EXPOSURE FROM WEEK 18 OF GESTATION.
     Route: 064
     Dates: start: 19990923, end: 20000117
  2. RETROVIR [Suspect]
     Dosage: EXPOSURE FROM WEEK 18 OF GESTATION.
     Route: 064
     Dates: start: 19990923, end: 20000117
  3. RETROVIR [Suspect]
     Indication: PROPHYLAXIS
     Dosage: RETROVIR SYRUP
     Route: 048
     Dates: start: 20000117, end: 20000228
  4. METHADONE HCL [Concomitant]
     Indication: DRUG DEPENDENCE
     Route: 064

REACTIONS (6)
  - BLOOD CREATINE PHOSPHOKINASE INCREASED [None]
  - BLOOD LACTIC ACID INCREASED [None]
  - MACROCYTOSIS [None]
  - NEUTROPENIA [None]
  - PREGNANCY [None]
  - STRABISMUS [None]
